FAERS Safety Report 6176965-7 (Version None)
Quarter: 2009Q2

REPORT INFORMATION
  Report Type: 
  Country: None (occurrence: None)
  Receive Date: 20090501
  Receipt Date: 20090423
  Transmission Date: 20091009
  Serious: Yes (Hospitalization, Other)
  Sender: FDA-Public Use
  Company Number: US-AMGEN-QUU343301

PATIENT
  Sex: Female
  Weight: 46.3 kg

DRUGS (9)
  1. ENBREL [Suspect]
     Indication: RHEUMATOID ARTHRITIS
     Route: 058
     Dates: start: 19991201, end: 20081001
  2. FOLIC ACID [Concomitant]
     Route: 048
  3. ZYRTEC [Concomitant]
     Route: 048
  4. PAREGORIC [Concomitant]
     Route: 048
  5. ATIVAN [Concomitant]
     Route: 048
  6. ZOMETA [Concomitant]
     Route: 042
  7. VOLTAREN [Concomitant]
     Route: 048
  8. CALCIUM WITH VITAMIN D [Concomitant]
     Route: 048
  9. UNSPECIFIED MEDICATION [Concomitant]

REACTIONS (25)
  - ANXIETY DISORDER [None]
  - ARTHRALGIA [None]
  - ARTHROPATHY [None]
  - BONE PAIN [None]
  - CATARACT [None]
  - CEREBROVASCULAR ACCIDENT [None]
  - CONSTIPATION [None]
  - CORNEAL OEDEMA [None]
  - CORONARY ARTERY DISEASE [None]
  - GASTROOESOPHAGEAL REFLUX DISEASE [None]
  - HYPERLIPIDAEMIA [None]
  - INSOMNIA [None]
  - LOCALISED INFECTION [None]
  - MACULAR DEGENERATION [None]
  - MUSCLE SPASMS [None]
  - OSTEOPENIA [None]
  - OSTEOPOROSIS [None]
  - PELVIC FRACTURE [None]
  - POLLAKIURIA [None]
  - PRURITUS [None]
  - RHEUMATOID NODULE [None]
  - RHINITIS ALLERGIC [None]
  - SCOLIOSIS [None]
  - TRANSIENT ISCHAEMIC ATTACK [None]
  - VISUAL IMPAIRMENT [None]
